FAERS Safety Report 9666331 (Version 1)
Quarter: 2013Q4

REPORT INFORMATION
  Report Type: Spontaneous
  Country: NL (occurrence: NL)
  Receive Date: 20131104
  Receipt Date: 20131104
  Transmission Date: 20140711
  Serious: Yes (Life-Threatening)
  Sender: FDA-Public Use
  Company Number: NL-ABBVIE-13P-114-1165520-00

PATIENT
  Age: 60 Year
  Sex: Male

DRUGS (2)
  1. KLACID [Suspect]
     Indication: DERMATITIS
     Route: 048
     Dates: start: 20131015
  2. VALSARTAN [Interacting]
     Indication: PRODUCT USED FOR UNKNOWN INDICATION
     Route: 048
     Dates: start: 19980101

REACTIONS (2)
  - Drug interaction [Recovered/Resolved]
  - Syncope [Recovered/Resolved]
